FAERS Safety Report 9235719 (Version 2)
Quarter: 2013Q2

REPORT INFORMATION
  Report Type: Spontaneous
  Country: US (occurrence: None)
  Receive Date: 20121031
  Receipt Date: 20130107
  Transmission Date: 20140414
  Serious: Yes (Other)
  Sender: FDA-Public Use
  Company Number: PHEH2012US016485

PATIENT
  Age: 47 Year
  Sex: Female
  Weight: 62.6 kg

DRUGS (10)
  1. GILENYA [Suspect]
     Indication: RELAPSING-REMITTING MULTIPLE SCLEROSIS
     Route: 048
     Dates: start: 20120809
  2. ALTACE (RAMIPRIL) [Concomitant]
  3. PRISTIQ (DESVENLAFAXINE SUCCINATE) [Concomitant]
  4. CALCIUM (CALCIUM) [Concomitant]
  5. ROBAXIN (METHOCARBAMOL) [Concomitant]
  6. DOLGESIC (PARACETAMOL) [Concomitant]
  7. ZYRTEC (CETIRIZINE HYDROCHLORIDE) [Concomitant]
  8. MOBIC (MELOXICAM) [Concomitant]
  9. MULTIVITAMINS (ASCORBIC ACID, ERGOCALCIFEROL, FOLIC ACID, NICOTINAMIDE, PANTHENOL, RETINOL, RIBOFLAVIN, THIAMINE HYDROCHLORIDE) [Concomitant]
  10. NEURONTIN (GABAPENTIN) [Concomitant]

REACTIONS (3)
  - Heart rate decreased [None]
  - Fatigue [None]
  - Hypertension [None]
